FAERS Safety Report 7467160-X (Version None)
Quarter: 2011Q2

REPORT INFORMATION
  Report Type: 
  Country: None (occurrence: None)
  Receive Date: 20110509
  Receipt Date: 20110503
  Transmission Date: 20111010
  Serious: Yes (Hospitalization, Other)
  Sender: FDA-Public Use
  Company Number: GB-WATSON-2011-06180

PATIENT
  Age: 23 Year
  Sex: Female

DRUGS (2)
  1. DIPYRIDAMOLE [Suspect]
     Indication: ISCHAEMIC STROKE
     Dosage: 200 MG, SINGLE
     Route: 048
  2. SUMATRIPTAN SUCCINATE [Suspect]
     Indication: MIGRAINE
     Dosage: 25 MG X 2 DOSES TOTAL IN ONE DAY
     Route: 048

REACTIONS (2)
  - ISCHAEMIC STROKE [None]
  - THROMBOCYTOPENIA [None]
